FAERS Safety Report 9070540 (Version 1)
Quarter: 2013Q1

REPORT INFORMATION
  Report Type: Spontaneous
  Country: US (occurrence: US)
  Receive Date: 20130215
  Receipt Date: 20130215
  Transmission Date: 20140127
  Serious: Yes (Hospitalization, Other)
  Sender: FDA-Public Use
  Company Number: US-JNJFOC-20130203213

PATIENT
  Age: 69 Year
  Sex: Male

DRUGS (4)
  1. INFLIXIMAB, RECOMBINANT [Suspect]
     Indication: COLITIS ULCERATIVE
     Dosage: DOSE PLANNED FOR WEEK 0, 2 AND 6
     Route: 042
  2. AZATHIOPRINE [Suspect]
     Indication: COLITIS ULCERATIVE
     Route: 065
  3. MESALAMINE [Suspect]
     Indication: COLITIS ULCERATIVE
     Route: 065
  4. CORTICOSTEROIDS [Suspect]
     Indication: COLITIS ULCERATIVE
     Route: 065

REACTIONS (6)
  - Blastomycosis [Recovering/Resolving]
  - Colitis ulcerative [Unknown]
  - Treatment failure [None]
  - Pneumonia [None]
  - Myocardial infarction [None]
  - Immunosuppression [None]
